FAERS Safety Report 21874240 (Version 1)
Quarter: 2023Q1

REPORT INFORMATION
  Report Type: Spontaneous
  Country: IT (occurrence: IT)
  Receive Date: 20230117
  Receipt Date: 20230117
  Transmission Date: 20230417
  Serious: Yes (Life-Threatening, Other)
  Sender: FDA-Public Use
  Company Number: None

PATIENT
  Age: 26 Year
  Sex: Male
  Weight: 80 kg

DRUGS (2)
  1. CARIPRAZINE HYDROCHLORIDE [Suspect]
     Active Substance: CARIPRAZINE HYDROCHLORIDE
     Indication: Product used for unknown indication
     Route: 048
     Dates: start: 20210214, end: 20210217
  2. ANAFRANIL [Interacting]
     Active Substance: CLOMIPRAMINE HYDROCHLORIDE
     Indication: Product used for unknown indication
     Route: 048
     Dates: start: 20210213, end: 20210217

REACTIONS (7)
  - Adjustment disorder [Recovered/Resolved]
  - Tremor [Recovering/Resolving]
  - Visual impairment [Recovered/Resolved]
  - Yawning [Recovered/Resolved]
  - Tinnitus [Recovered/Resolved]
  - Drug interaction [Unknown]
  - Tachycardia [Recovering/Resolving]

NARRATIVE: CASE EVENT DATE: 20210214
